FAERS Safety Report 25896068 (Version 1)
Quarter: 2025Q4

REPORT INFORMATION
  Report Type: Spontaneous
  Country: US (occurrence: None)
  Receive Date: 20251008
  Receipt Date: 20251008
  Transmission Date: 20260117
  Serious: Yes (Hospitalization)
  Sender: FDA-CTU
  Company Number: None

PATIENT
  Sex: Male

DRUGS (1)
  1. RAVICTI [Suspect]
     Active Substance: GLYCEROL PHENYLBUTYRATE
     Indication: Urea cycle disorder
     Dosage: OTHER STRENGTH : 1.1GM/ML;?FREQUENCY : 3 TIMES A DAY;?
     Route: 048
     Dates: start: 20250326

REACTIONS (1)
  - Ammonia increased [None]
